FAERS Safety Report 9432728 (Version 1)
Quarter: 2013Q3

REPORT INFORMATION
  Report Type: Spontaneous
  Country: JP (occurrence: JP)
  Receive Date: 20130729
  Receipt Date: 20130729
  Transmission Date: 20140515
  Serious: Yes (Hospitalization)
  Sender: FDA-Public Use
  Company Number: TCI2013A04324

PATIENT
  Age: 83 Year
  Sex: Female

DRUGS (7)
  1. NESINA TABLETS 25 MG (ALOGLIPTIN BENZOATE) [Suspect]
     Indication: TYPE 2 DIABETES MELLITUS
     Route: 048
     Dates: start: 20120526, end: 20130325
  2. METGLUCO (METFORMIN HYDROCHLORIDE) [Concomitant]
  3. EUGLUCON (GLIBENCLAMIDE) [Concomitant]
  4. DIOVAN (VALSARTAN) [Concomitant]
  5. BAYASPIRIN (ACETYLSALICYLIC ACID) (ACETYLSALICYLIC ACID) [Concomitant]
  6. DOXAZOSIN (DOXAZOSIN MESILATE) [Concomitant]
  7. CADUET 3 (AMLODIPINE BESILATE, ATORVASTATIN CALCIUM) [Concomitant]

REACTIONS (1)
  - Pancreatic carcinoma [None]
